FAERS Safety Report 9348593 (Version 3)
Quarter: 2013Q3

REPORT INFORMATION
  Report Type: Report from Study
  Country: FR (occurrence: FR)
  Receive Date: 20130614
  Receipt Date: 20130809
  Transmission Date: 20140515
  Serious: Yes (Death, Hospitalization)
  Sender: FDA-Public Use
  Company Number: FR-AMGEN-FRANI2013041691

PATIENT
  Age: 84 Year
  Sex: Female

DRUGS (5)
  1. PANITUMUMAB [Suspect]
     Indication: COLORECTAL CANCER METASTATIC
     Dosage: 300 MG, Q2WK
     Route: 042
     Dates: start: 20121121, end: 20130130
  2. MOTILIUM [Concomitant]
     Dosage: UNK
     Route: 048
     Dates: start: 20121231
  3. SOLUPRED [Concomitant]
     Dosage: UNK
     Route: 048
     Dates: start: 20121218
  4. LAMALINE [Concomitant]
     Dosage: UNK
     Route: 048
     Dates: start: 20121231
  5. DUROGESIC [Concomitant]
     Dosage: UNK
     Dates: start: 20130212

REACTIONS (1)
  - Disease progression [Fatal]
